FAERS Safety Report 24857282 (Version 2)
Quarter: 2025Q1

REPORT INFORMATION
  Report Type: Report from Study
  Country: GB (occurrence: GB)
  Receive Date: 20250117
  Receipt Date: 20250130
  Transmission Date: 20250409
  Serious: Yes (Other)
  Sender: TAKEDA
  Company Number: GB-TAKEDA-2025TUS004670

PATIENT
  Sex: Female

DRUGS (2)
  1. ADAMTS13, RECOMBINANT-KRHN [Suspect]
     Active Substance: ADAMTS13, RECOMBINANT-KRHN
     Indication: Thrombotic thrombocytopenic purpura
     Dosage: UNK UNK, Q2WEEKS
  2. ADAMTS13, RECOMBINANT-KRHN [Suspect]
     Active Substance: ADAMTS13, RECOMBINANT-KRHN
     Dosage: UNK, 2/WEEK

REACTIONS (2)
  - Drug level decreased [Unknown]
  - Congenital thrombotic thrombocytopenic purpura [Unknown]
